FAERS Safety Report 4316721-5 (Version None)
Quarter: 2004Q1

REPORT INFORMATION
  Report Type: 
  Country: None (occurrence: None)
  Receive Date: 20040311
  Receipt Date: 20040301
  Transmission Date: 20041129
  Serious: Yes (Hospitalization)
  Sender: FDA-Public Use
  Company Number: 2003-12-1845

PATIENT
  Age: 8 Year
  Sex: Female
  Weight: 28.5766 kg

DRUGS (6)
  1. NASONEX [Suspect]
     Indication: RHINORRHOEA
     Dosage: 100 MCG QD NASAL SPRAY; 100 MCG QOD NASAL SPRAY
     Route: 045
     Dates: start: 20031201, end: 20031229
  2. NASONEX [Suspect]
     Indication: RHINORRHOEA
     Dosage: 100 MCG QD NASAL SPRAY; 100 MCG QOD NASAL SPRAY
     Route: 045
     Dates: start: 20040105, end: 20040101
  3. DEPAKENE [Concomitant]
  4. IMODIUM [Concomitant]
  5. KEPPRA [Concomitant]
  6. CARNICOR [Concomitant]

REACTIONS (4)
  - EAR PAIN [None]
  - HEADACHE [None]
  - PNEUMONIA [None]
  - TRACHEOSTOMY MALFUNCTION [None]
